FAERS Safety Report 20684870 (Version 1)
Quarter: 2022Q2

REPORT INFORMATION
  Report Type: Spontaneous
  Country: US (occurrence: None)
  Receive Date: 20220405
  Receipt Date: 20220405
  Transmission Date: 20220721
  Serious: Yes (Other)
  Sender: FDA-Public Use
  Company Number: None

PATIENT
  Sex: Female

DRUGS (5)
  1. HUMIRA [Suspect]
     Active Substance: ADALIMUMAB
     Indication: Colitis ulcerative
     Dosage: OTHER QUANTITY : 40MG/0.4ML;?RX2: INJECT 1 PEN UNDER THE SKIN (SUBCUTANEOUS  INJECTION) EVERY OTHER
     Route: 058
     Dates: start: 20211223
  2. BENZONATATE  CAP 100MG [Concomitant]
  3. HUMIRA CF PEN-CD/UC/HS START [Concomitant]
  4. HYDROXYZ HCL TAB 25MG [Concomitant]
  5. PROAIR HFA [Concomitant]
     Active Substance: ALBUTEROL SULFATE

REACTIONS (3)
  - Surgery [None]
  - Therapy interrupted [None]
  - Inappropriate schedule of product administration [None]
